FAERS Safety Report 7581298-8 (Version None)
Quarter: 2011Q2

REPORT INFORMATION
  Report Type: 
  Country: None (occurrence: None)
  Receive Date: 20110629
  Receipt Date: 20110621
  Transmission Date: 20111010
  Serious: Yes (Hospitalization, Disabling, Other)
  Sender: FDA-Public Use
  Company Number: US-ROCHE-349554

PATIENT
  Sex: Female
  Weight: 63.5 kg

DRUGS (6)
  1. ACCUTANE [Suspect]
     Route: 048
     Dates: start: 19980617, end: 19990501
  2. ACCUTANE [Suspect]
     Route: 048
     Dates: start: 19921118, end: 19921201
  3. NAPROXEN (ALEVE) [Concomitant]
  4. ADVIL LIQUI-GELS [Concomitant]
     Route: 048
  5. DESOGEN [Concomitant]
  6. ACCUTANE [Suspect]
     Route: 048
     Dates: start: 19921201, end: 19930519

REACTIONS (41)
  - LIPOMA [None]
  - FEELING JITTERY [None]
  - BREAST MASS [None]
  - FATIGUE [None]
  - WEIGHT INCREASED [None]
  - VITAMIN B12 DEFICIENCY [None]
  - ASPARTATE AMINOTRANSFERASE INCREASED [None]
  - CHEST PAIN [None]
  - ANXIETY [None]
  - MUSCULOSKELETAL DISCOMFORT [None]
  - DRY SKIN [None]
  - HERPES VIRUS INFECTION [None]
  - DYSPNOEA [None]
  - DRUG HYPERSENSITIVITY [None]
  - MAJOR DEPRESSION [None]
  - ABSCESS INTESTINAL [None]
  - HEADACHE [None]
  - COLITIS ULCERATIVE [None]
  - IRRITABLE BOWEL SYNDROME [None]
  - ALANINE AMINOTRANSFERASE INCREASED [None]
  - DEPRESSION [None]
  - CROHN'S DISEASE [None]
  - ARTHRALGIA [None]
  - BACK PAIN [None]
  - DYSTHYMIC DISORDER [None]
  - BLOOD PRESSURE INCREASED [None]
  - INGUINAL HERNIA [None]
  - MENSTRUATION IRREGULAR [None]
  - OTITIS EXTERNA [None]
  - WEIGHT DECREASED [None]
  - TERMINAL INSOMNIA [None]
  - INFLAMMATORY BOWEL DISEASE [None]
  - DISTURBANCE IN ATTENTION [None]
  - DERMATITIS [None]
  - BLOOD CHOLESTEROL INCREASED [None]
  - PROCTITIS [None]
  - TONSILLITIS [None]
  - ANKYLOSING SPONDYLITIS [None]
  - ABDOMINAL DISTENSION [None]
  - BLOOD TRIGLYCERIDES INCREASED [None]
  - URTICARIA [None]
